FAERS Safety Report 9005948 (Version 2)
Quarter: 2013Q1

REPORT INFORMATION
  Report Type: Spontaneous
  Country: US (occurrence: US)
  Receive Date: 20130109
  Receipt Date: 20130131
  Transmission Date: 20140127
  Serious: No
  Sender: FDA-Public Use
  Company Number: US-TEVA-379704USA

PATIENT
  Age: 19 Year
  Sex: Female
  Weight: 69.46 kg

DRUGS (2)
  1. PLAN B ONE-STEP [Suspect]
     Indication: POST COITAL CONTRACEPTION
     Dosage: 1.5 MILLIGRAM DAILY;
     Route: 048
     Dates: start: 20130107, end: 20130107
  2. AVIANE [Concomitant]
     Indication: CONTRACEPTION

REACTIONS (2)
  - Vaginal discharge [Recovered/Resolved]
  - Vaginal infection [Recovered/Resolved]
